FAERS Safety Report 4310336-0 (Version None)
Quarter: 2004Q1

REPORT INFORMATION
  Report Type: 
  Country: None (occurrence: None)
  Receive Date: 20040303
  Receipt Date: 20021002
  Transmission Date: 20041129
  Serious: Yes (Hospitalization)
  Sender: FDA-Public Use
  Company Number: US-ROCHE-322799

PATIENT
  Age: 25 Year
  Sex: Female

DRUGS (4)
  1. ACCUTANE [Suspect]
     Indication: ACNE
     Dosage: DURATION OF THERAPY REPORTED AS YEARS.
     Route: 048
  2. ACCUTANE [Suspect]
     Route: 048
     Dates: start: 20001115, end: 20010115
  3. DEPO-PROVERA [Concomitant]
     Indication: CONTRACEPTION
     Dates: start: 20000715, end: 20010115
  4. ZOLOFT [Concomitant]
     Indication: ANXIETY
     Route: 048

REACTIONS (3)
  - ABORTION INCOMPLETE [None]
  - ECTOPIC PREGNANCY [None]
  - MATERNAL DRUGS AFFECTING FOETUS [None]
